FAERS Safety Report 20176433 (Version 4)
Quarter: 2022Q1

REPORT INFORMATION
  Report Type: Spontaneous
  Country: US (occurrence: US)
  Receive Date: 20211213
  Receipt Date: 20220114
  Transmission Date: 20220423
  Serious: No
  Sender: FDA-Public Use
  Company Number: US-AMGEN-USASP2021195151

PATIENT
  Age: 81 Year
  Sex: Female
  Weight: 59.41 kg

DRUGS (2)
  1. NEULASTA [Suspect]
     Active Substance: PEGFILGRASTIM
     Indication: Neutropenia
     Dosage: UNK,
     Route: 065
  2. NEULASTA [Suspect]
     Active Substance: PEGFILGRASTIM
     Dosage: UNK,
     Route: 065

REACTIONS (2)
  - Application site haemorrhage [Unknown]
  - Device occlusion [Unknown]

NARRATIVE: CASE EVENT DATE: 20211105
